FAERS Safety Report 9653229 (Version 1)
Quarter: 2013Q4

REPORT INFORMATION
  Report Type: Spontaneous
  Country: US (occurrence: None)
  Receive Date: 20131028
  Receipt Date: 20131028
  Transmission Date: 20140711
  Serious: Yes (Hospitalization, Disabling, Other)
  Sender: FDA-Public Use
  Company Number: None

PATIENT
  Age: 23 Year
  Sex: Male
  Weight: 103.42 kg

DRUGS (1)
  1. MEFLOQUINE [Suspect]
     Indication: MALARIA PROPHYLAXIS
     Dates: start: 19960703, end: 19990403

REACTIONS (5)
  - Loss of employment [None]
  - Major depression [None]
  - Impaired work ability [None]
  - Memory impairment [None]
  - Post procedural complication [None]
